FAERS Safety Report 5058114-1 (Version None)
Quarter: 2006Q3

REPORT INFORMATION
  Report Type: 
  Country: None (occurrence: None)
  Receive Date: 20060721
  Receipt Date: 20060418
  Transmission Date: 20061208
  Serious: Yes (Death)
  Sender: FDA-Public Use
  Company Number: GB-GLAXOSMITHKLINE-B0420717A

PATIENT
  Age: 11 Year
  Sex: Female

DRUGS (3)
  1. SEREVENT [Suspect]
     Indication: ASTHMA
     Dosage: 25MCG UNKNOWN
     Route: 055
     Dates: start: 20050517, end: 20050518
  2. UNKNOWN MEDICATION [Concomitant]
  3. VENTOLIN [Concomitant]
     Indication: WHEEZING
     Dosage: 2PUFF AS REQUIRED
     Dates: start: 20050507, end: 20050517

REACTIONS (6)
  - ASTHMA [None]
  - CIRCULATORY COLLAPSE [None]
  - DYSPNOEA [None]
  - FATIGUE [None]
  - MALAISE [None]
  - PULMONARY OEDEMA [None]
